FAERS Safety Report 7338429-4 (Version None)
Quarter: 2011Q1

REPORT INFORMATION
  Report Type: 
  Country: None (occurrence: None)
  Receive Date: 20110308
  Receipt Date: 20110225
  Transmission Date: 20110831
  Serious: Yes (Death, Hospitalization)
  Sender: FDA-Public Use
  Company Number: AU-JNJFOC-20080204842

PATIENT
  Sex: Male
  Weight: 64 kg

DRUGS (15)
  1. GOLIMUMAB [Suspect]
     Dosage: WEEK 60
     Route: 058
  2. PARACETAMOL [Concomitant]
     Route: 048
  3. PANAFCORT [Concomitant]
     Route: 048
  4. GOLIMUMAB [Suspect]
     Indication: RHEUMATOID ARTHRITIS
     Route: 058
  5. GOLIMUMAB [Suspect]
     Dosage: WEEK 52
     Route: 058
  6. GOLIMUMAB [Suspect]
     Dosage: WEEK 56
     Route: 058
  7. ZOLOFT [Concomitant]
     Route: 048
  8. GOLIMUMAB [Suspect]
     Route: 058
  9. GOLIMUMAB [Suspect]
     Route: 058
  10. GOLIMUMAB [Suspect]
     Route: 058
  11. METHOTREXATE [Suspect]
     Indication: RHEUMATOID ARTHRITIS
     Route: 048
  12. FOLIC ACID [Concomitant]
     Route: 048
  13. GOLIMUMAB [Suspect]
     Route: 058
  14. GOLIMUMAB [Suspect]
     Route: 058
  15. EFFEXOR [Concomitant]
     Route: 048

REACTIONS (1)
  - LUNG NEOPLASM MALIGNANT [None]
